FAERS Safety Report 9861317 (Version 1)
Quarter: 2014Q1

REPORT INFORMATION
  Report Type: Spontaneous
  Country: US (occurrence: None)
  Receive Date: 20140130
  Receipt Date: 20140130
  Transmission Date: 20141002
  Serious: Yes (Death)
  Sender: FDA-Public Use
  Company Number: 2014AP000735

PATIENT
  Age: 62 Year
  Sex: Male

DRUGS (4)
  1. QUETIAPINE FUMARATE [Suspect]
     Dosage: PARN
  2. ALPRAZOLAM [Suspect]
     Dosage: PARN
  3. HEROIN [Suspect]
     Dosage: PARN
  4. FLUOXETINE HYDROCHLORIDE ORAL SOLUTION [Suspect]
     Dosage: PARN

REACTIONS (1)
  - Drug abuse [None]
